FAERS Safety Report 6235487-5 (Version None)
Quarter: 2009Q2

REPORT INFORMATION
  Report Type: 
  Country: None (occurrence: None)
  Receive Date: 20090618
  Receipt Date: 20080519
  Transmission Date: 20091009
  Serious: No
  Sender: FDA-Public Use
  Company Number: US-ASTRAZENECA-2008UW10282

PATIENT
  Age: 88 Year
  Sex: Female

DRUGS (4)
  1. RHINOCORT [Suspect]
     Route: 045
     Dates: start: 20080329, end: 20080517
  2. OMEPRAZOLE [Concomitant]
  3. FERROUS SULFATE TAB [Concomitant]
  4. NEURONTIN [Concomitant]

REACTIONS (2)
  - AGEUSIA [None]
  - ANOSMIA [None]
